FAERS Safety Report 6577753-X (Version None)
Quarter: 2010Q1

REPORT INFORMATION
  Report Type: 
  Country: None (occurrence: None)
  Receive Date: 20100211
  Receipt Date: 20100129
  Transmission Date: 20100710
  Serious: No
  Sender: FDA-Public Use
  Company Number: US-ELI_LILLY_AND_COMPANY-US200912002097

PATIENT
  Sex: Female
  Weight: 54.422 kg

DRUGS (11)
  1. ADCIRCA [Suspect]
     Indication: PULMONARY HYPERTENSION
     Dosage: 40 MG, DAILY (1/D)
     Route: 048
     Dates: start: 20091207
  2. REVATIO [Concomitant]
     Dosage: 20 MG, 3/D
     Route: 048
     Dates: end: 20091206
  3. LASIX [Concomitant]
     Dosage: 20 MG, DAILY (1/D)
     Route: 048
  4. LOSARTAN POTASSIUM [Concomitant]
     Dosage: 25 MG, 2/D
     Route: 048
  5. COREG [Concomitant]
     Dosage: 3.125 MG, 2/D
     Route: 048
  6. CELEXA [Concomitant]
     Dosage: 20 MG, DAILY (1/D)
     Route: 048
  7. DIGOXIN [Concomitant]
     Dosage: 125 UG, DAILY (1/D)
     Route: 048
  8. COUMADIN [Concomitant]
     Dosage: 4 MG, DAILY (1/D)
     Route: 048
  9. CALCIUM D [Concomitant]
     Dosage: UNK, DAILY (1/D)
     Route: 048
  10. OXYGEN [Concomitant]
     Dosage: 2 LITER, AS NEEDED
     Route: 045
  11. VITAMINS [Concomitant]
     Dosage: UNK, DAILY (1/D)
     Route: 048

REACTIONS (2)
  - COLOUR BLINDNESS ACQUIRED [None]
  - MUSCLE SPASMS [None]
